FAERS Safety Report 23505731 (Version 2)
Quarter: 2024Q1

REPORT INFORMATION
  Report Type: Other
  Country: US (occurrence: None)
  Receive Date: 20240209
  Receipt Date: 20240305
  Transmission Date: 20240409
  Serious: Yes (Hospitalization)
  Sender: FDA-Public Use
  Company Number: US-ROCHE-2490471

PATIENT
  Age: 55 Year
  Sex: Female

DRUGS (3)
  1. OCREVUS [Suspect]
     Active Substance: OCRELIZUMAB
     Indication: Relapsing multiple sclerosis
     Route: 042
     Dates: start: 20181017
  2. OCREVUS [Suspect]
     Active Substance: OCRELIZUMAB
     Route: 042
  3. OCREVUS [Suspect]
     Active Substance: OCRELIZUMAB
     Dosage: FIRST HALF DOSE, THEN SECOND HALF DOSE 3 MONTHS LATER AND THEN FIRST FULL DOSE 6 MONTHS LATER^
     Route: 042
     Dates: start: 2020, end: 2021

REACTIONS (8)
  - Coronary artery disease [Unknown]
  - Conjunctivitis [Not Recovered/Not Resolved]
  - Myocardial infarction [Unknown]
  - Chest pain [Unknown]
  - Pruritus [Not Recovered/Not Resolved]
  - Swelling [Not Recovered/Not Resolved]
  - Skin burning sensation [Not Recovered/Not Resolved]
  - Off label use [Unknown]

NARRATIVE: CASE EVENT DATE: 20191113
